FAERS Safety Report 21637086 (Version 1)
Quarter: 2022Q4

REPORT INFORMATION
  Report Type: Spontaneous
  Country: AR (occurrence: AR)
  Receive Date: 20221124
  Receipt Date: 20221124
  Transmission Date: 20230113
  Serious: Yes (Other)
  Sender: FDA-Public Use
  Company Number: AR-PFIZER INC-PV202200106683

PATIENT
  Age: 74 Year
  Sex: Female

DRUGS (1)
  1. ENBREL [Suspect]
     Active Substance: ETANERCEPT
     Indication: Product used for unknown indication
     Dosage: UNK
     Route: 065

REACTIONS (6)
  - Psoriatic arthropathy [Unknown]
  - Lung neoplasm malignant [Unknown]
  - Gait disturbance [Unknown]
  - Spinal disorder [Unknown]
  - Bronchospasm [Unknown]
  - Drug ineffective [Unknown]
